FAERS Safety Report 5641253-1 (Version None)
Quarter: 2008Q1

REPORT INFORMATION
  Report Type: 
  Country: None (occurrence: None)
  Receive Date: 20080227
  Receipt Date: 20070412
  Transmission Date: 20080703
  Serious: No
  Sender: FDA-Public Use
  Company Number: A0646762A

PATIENT
  Sex: Female

DRUGS (2)
  1. NICORETTE [Suspect]
     Indication: DRUG USE FOR UNKNOWN INDICATION
  2. LISTERINE [Concomitant]

REACTIONS (5)
  - GINGIVAL ULCERATION [None]
  - MOUTH ULCERATION [None]
  - SKIN ULCER [None]
  - TONGUE ULCERATION [None]
  - TOOTH DISORDER [None]
